FAERS Safety Report 18722129 (Version 1)
Quarter: 2021Q1

REPORT INFORMATION
  Report Type: Spontaneous
  Country: BE (occurrence: BE)
  Receive Date: 20210111
  Receipt Date: 20210111
  Transmission Date: 20210419
  Serious: Yes (Life-Threatening, Hospitalization)
  Sender: FDA-Public Use
  Company Number: BE-ROCHE-2746220

PATIENT
  Age: 66 Year
  Sex: Female
  Weight: 75 kg

DRUGS (6)
  1. HERCEPTIN [Concomitant]
     Active Substance: TRASTUZUMAB
     Route: 058
     Dates: start: 20201123
  2. PERJETA [Suspect]
     Active Substance: PERTUZUMAB
     Indication: BREAST CANCER METASTATIC
     Dosage: FIRST ADMINISTRATION OF PERTUZUMAB (840 MG) ON 09/10/2020. THEN 420 MG PERTUZUMAB ON 10/30/2020 AND
     Route: 042
     Dates: start: 20201218, end: 20201218
  3. TAXOL [Concomitant]
     Active Substance: PACLITAXEL
     Dates: start: 20201123
  4. XGEVA [Concomitant]
     Active Substance: DENOSUMAB
     Route: 058
     Dates: start: 20201123
  5. OMEPRAZOLE. [Concomitant]
     Active Substance: OMEPRAZOLE
  6. COAPROVEL [Concomitant]
     Active Substance: HYDROCHLOROTHIAZIDE\IRBESARTAN

REACTIONS (8)
  - Gastrointestinal disorder [Recovered/Resolved]
  - Pulse absent [Recovered/Resolved]
  - Rash macular [Recovered/Resolved]
  - Life support [Recovered/Resolved]
  - Unresponsive to stimuli [Recovered/Resolved]
  - Anaphylactic reaction [Recovered/Resolved]
  - Diarrhoea [Recovered/Resolved]
  - Hypotension [Recovered/Resolved]

NARRATIVE: CASE EVENT DATE: 20201218
